FAERS Safety Report 6861941-9 (Version None)
Quarter: 2010Q3

REPORT INFORMATION
  Report Type: 
  Country: None (occurrence: None)
  Receive Date: 20100720
  Receipt Date: 20100720
  Transmission Date: 20110219
  Serious: Yes (Other)
  Sender: FDA-Public Use
  Company Number: None

PATIENT
  Sex: Female
  Weight: 49.4421 kg

DRUGS (5)
  1. FOSAMAX [Suspect]
     Indication: OSTEOPOROSIS
     Dates: start: 20031223, end: 20100623
  2. ACCUPRIL [Concomitant]
  3. CATAFLAM [Concomitant]
  4. LOTREL [Concomitant]
  5. HUMIRA [Concomitant]

REACTIONS (1)
  - FEMUR FRACTURE [None]
